APPROVED DRUG PRODUCT: NAPROXEN
Active Ingredient: NAPROXEN
Strength: 375MG
Dosage Form/Route: TABLET;ORAL
Application: A212517 | Product #002 | TE Code: AB
Applicant: SCIEGEN PHARMACEUTICALS INC
Approved: Feb 21, 2020 | RLD: No | RS: No | Type: RX